FAERS Safety Report 6880856-3 (Version None)
Quarter: 2010Q2

REPORT INFORMATION
  Report Type: 
  Country: None (occurrence: None)
  Receive Date: 20100630
  Receipt Date: 20100517
  Transmission Date: 20101027
  Serious: No
  Sender: FDA-Public Use
  Company Number: 1000013872

PATIENT
  Age: 76 Year
  Sex: Female

DRUGS (5)
  1. BYSTOLIC [Suspect]
     Indication: HYPERTENSION
     Dosage: 5 MG (5 MG, 1 IN 1 D), ORAL
     Route: 048
     Dates: start: 20100201, end: 20100321
  2. BYSTOLIC [Suspect]
     Indication: HYPERTENSION
     Dosage: 10 MG (10 MG, 1 IN 1 D), ORAL
     Route: 048
     Dates: start: 20100322, end: 20100507
  3. SYNTHROID [Concomitant]
  4. PRAVACHOL [Concomitant]
  5. ZETIA [Concomitant]

REACTIONS (6)
  - DYSPNOEA [None]
  - ERYTHEMA [None]
  - PARAESTHESIA [None]
  - PRURITUS [None]
  - RASH [None]
  - VISION BLURRED [None]
